FAERS Safety Report 6590021-5 (Version None)
Quarter: 2010Q1

REPORT INFORMATION
  Report Type: 
  Country: None (occurrence: None)
  Receive Date: 20100219
  Receipt Date: 20100209
  Transmission Date: 20100710
  Serious: No
  Sender: FDA-Public Use
  Company Number: PHHY2009CA38758

PATIENT
  Sex: Female

DRUGS (1)
  1. EXJADE [Suspect]
     Indication: APLASIA PURE RED CELL
     Dosage: UNK
     Route: 048
     Dates: start: 20090701

REACTIONS (3)
  - DEPRESSION [None]
  - HYPOACUSIS [None]
  - INSOMNIA [None]
